FAERS Safety Report 19489720 (Version 1)
Quarter: 2021Q3

REPORT INFORMATION
  Report Type: Spontaneous
  Country: US (occurrence: US)
  Receive Date: 20210704
  Receipt Date: 20210704
  Transmission Date: 20211014
  Serious: No
  Sender: FDA-Public Use
  Company Number: US-ORGANON-O2106USA002144

PATIENT
  Age: 39 Year
  Sex: Male

DRUGS (1)
  1. PROSCAR [Suspect]
     Active Substance: FINASTERIDE
     Indication: DERMATITIS PAPILLARIS CAPILLITII
     Dosage: UNK

REACTIONS (1)
  - Product use in unapproved indication [Unknown]
